FAERS Safety Report 24757201 (Version 3)
Quarter: 2025Q3

REPORT INFORMATION
  Report Type: Report from Study
  Country: US (occurrence: US)
  Receive Date: 20241220
  Receipt Date: 20250809
  Transmission Date: 20251020
  Serious: Yes (Life-Threatening, Hospitalization, Other)
  Sender: ALEXION PHARMACEUTICALS
  Company Number: US-AstraZeneca-CH-00770188A

PATIENT
  Age: 59 Year
  Sex: Female

DRUGS (7)
  1. TICAGRELOR [Suspect]
     Active Substance: TICAGRELOR
     Indication: Stent placement
  2. FARXIGA [Suspect]
     Active Substance: DAPAGLIFLOZIN PROPANEDIOL
     Route: 065
  3. TORSEMIDE [Concomitant]
     Active Substance: TORSEMIDE
     Route: 065
  4. SPIRONOLACTONE [Concomitant]
     Active Substance: SPIRONOLACTONE
     Route: 065
  5. METOPROLOL [Concomitant]
     Active Substance: METOPROLOL
     Route: 065
  6. LIPITOR [Concomitant]
     Active Substance: ATORVASTATIN CALCIUM
     Route: 065
  7. ENTRESTO [Concomitant]
     Active Substance: SACUBITRIL\VALSARTAN
     Route: 065

REACTIONS (13)
  - Acute myocardial infarction [Unknown]
  - Coronary artery thrombosis [Unknown]
  - Cardiac failure [Unknown]
  - Depression [Unknown]
  - Ejection fraction decreased [Unknown]
  - Cardiac aneurysm [Unknown]
  - Blood pressure decreased [Unknown]
  - Renal disorder [Unknown]
  - Stress [Unknown]
  - Drug hypersensitivity [Unknown]
  - Paraesthesia [Unknown]
  - Hypoaesthesia [Unknown]
  - Rash [Unknown]

NARRATIVE: CASE EVENT DATE: 20231101
